FAERS Safety Report 9390030 (Version 1)
Quarter: 2013Q3

REPORT INFORMATION
  Report Type: Spontaneous
  Country: US (occurrence: US)
  Receive Date: 20130708
  Receipt Date: 20130708
  Transmission Date: 20140515
  Serious: No
  Sender: FDA-Public Use
  Company Number: US-AMGEN-USASP2013040714

PATIENT
  Age: 54 Year
  Sex: Female

DRUGS (5)
  1. ENBREL [Suspect]
     Indication: ANKYLOSING SPONDYLITIS
     Dosage: 50 MG, QWK
     Route: 065
     Dates: start: 20130531
  2. NAPROXEN [Concomitant]
     Dosage: UNK
  3. LYRICA [Concomitant]
     Dosage: UNK
  4. CELEBREX [Concomitant]
     Dosage: UNK
  5. TOPAMAX [Concomitant]
     Dosage: UNK

REACTIONS (8)
  - Headache [Not Recovered/Not Resolved]
  - Back pain [Not Recovered/Not Resolved]
  - Dizziness [Not Recovered/Not Resolved]
  - Injection site erythema [Not Recovered/Not Resolved]
  - Injection site swelling [Not Recovered/Not Resolved]
  - Injection site pruritus [Not Recovered/Not Resolved]
  - Injection site discolouration [Not Recovered/Not Resolved]
  - Injection site reaction [Not Recovered/Not Resolved]
